FAERS Safety Report 7509834-8 (Version None)
Quarter: 2011Q2

REPORT INFORMATION
  Report Type: 
  Country: None (occurrence: None)
  Receive Date: 20110527
  Receipt Date: 20110518
  Transmission Date: 20111010
  Serious: Yes (Hospitalization)
  Sender: FDA-Public Use
  Company Number: A0929241A

PATIENT
  Age: 51 Year
  Sex: Female
  Weight: 3 kg

DRUGS (1)
  1. TYKERB [Suspect]
     Indication: PRODUCT USED FOR UNKNOWN INDICATION
     Dosage: 1250MG PER DAY
     Route: 048
     Dates: start: 20110502

REACTIONS (4)
  - DEHYDRATION [None]
  - CHEST PAIN [None]
  - DIARRHOEA [None]
  - WEIGHT DECREASED [None]
